FAERS Safety Report 7968144-5 (Version None)
Quarter: 2011Q4

REPORT INFORMATION
  Report Type: 
  Country: None (occurrence: None)
  Receive Date: 20111121
  Receipt Date: 20110926
  Transmission Date: 20120403
  Serious: No
  Sender: FDA-Public Use
  Company Number: 1000024172

PATIENT
  Age: 48 Year
  Sex: Male

DRUGS (7)
  1. INDERAL [Concomitant]
  2. CRESTOR [Concomitant]
  3. XANAX [Concomitant]
  4. VIIBRYD [Suspect]
     Indication: DEPRESSION
     Dosage: 10 MG (10 MG, 1 IN 1 D), ORAL
     Route: 048
     Dates: start: 20110901, end: 20110901
  5. VIIBRYD [Suspect]
     Indication: DEPRESSION
     Dosage: 20 MG (20 MG, 1 IN 1 D), ORAL 10 MG (10 MG, 1 IN 1 D), ORAL
     Route: 048
     Dates: start: 20110901
  6. VIIBRYD [Suspect]
     Indication: DEPRESSION
     Dosage: 20 MG (20 MG, 1 IN 1 D), ORAL 10 MG (10 MG, 1 IN 1 D), ORAL
     Route: 048
     Dates: start: 20110901, end: 20110901
  7. PLAVIX (CLOPIDOGREL BISULFATE) (CLOPIDOGREL BISULFATE) [Concomitant]

REACTIONS (1)
  - PARAESTHESIA [None]
